FAERS Safety Report 6445150-3 (Version None)
Quarter: 2009Q4

REPORT INFORMATION
  Report Type: 
  Country: None (occurrence: None)
  Receive Date: 20091116
  Receipt Date: 20091116
  Transmission Date: 20100525
  Serious: Yes (Hospitalization)
  Sender: FDA-Public Use
  Company Number: None

PATIENT
  Age: 85 Year
  Sex: Male
  Weight: 83.7 kg

DRUGS (1)
  1. CIPROFLOXACIN [Suspect]
     Indication: SURGERY
     Dosage: 500 MG BID PO
     Route: 048
     Dates: start: 20081208, end: 20081208

REACTIONS (3)
  - CONVULSION [None]
  - HAEMOPTYSIS [None]
  - UNRESPONSIVE TO STIMULI [None]
